FAERS Safety Report 20199705 (Version 2)
Quarter: 2024Q1

REPORT INFORMATION
  Report Type: Spontaneous
  Country: US (occurrence: US)
  Receive Date: 20211217
  Receipt Date: 20240201
  Transmission Date: 20240409
  Serious: No
  Sender: FDA-Public Use
  Company Number: US-NOVEN PHARMACEUTICALS, INC.-2020US008080

PATIENT
  Sex: Female
  Weight: 68.027 kg

DRUGS (3)
  1. ESTRADIOL [Suspect]
     Active Substance: ESTRADIOL
     Indication: Blood oestrogen decreased
     Dosage: UNK, UNK
     Route: 062
  2. ESTRADIOL [Suspect]
     Active Substance: ESTRADIOL
     Indication: Poor quality sleep
  3. PROGESTERONE [Concomitant]
     Active Substance: PROGESTERONE
     Indication: Vaginal haemorrhage
     Dosage: UNK, UNK
     Route: 067

REACTIONS (1)
  - Postmenopausal haemorrhage [Recovered/Resolved]
